FAERS Safety Report 24371776 (Version 1)
Quarter: 2024Q3

REPORT INFORMATION
  Report Type: Spontaneous
  Country: US (occurrence: None)
  Receive Date: 20240926
  Receipt Date: 20240926
  Transmission Date: 20241016
  Serious: No
  Sender: Public
  Company Number: None

PATIENT
  Age: 68 Year
  Sex: Female
  Weight: 108.86 kg

DRUGS (1)
  1. RINVOQ [Suspect]
     Active Substance: UPADACITINIB
     Indication: Bone density abnormal
     Dosage: FREQUENCY : DAILY;?
     Route: 048
     Dates: start: 202209

REACTIONS (2)
  - Respiratory tract congestion [None]
  - Dyspnoea [None]
